FAERS Safety Report 7626036-5 (Version None)
Quarter: 2011Q3

REPORT INFORMATION
  Report Type: 
  Country: None (occurrence: None)
  Receive Date: 20110721
  Receipt Date: 20110707
  Transmission Date: 20111222
  Serious: Yes (Death)
  Sender: FDA-Public Use
  Company Number: US-PFIZER INC-2010001186

PATIENT
  Age: 47 Year
  Sex: Male

DRUGS (8)
  1. NORTRIPTYLINE HCL [Suspect]
     Dosage: UNK
     Route: 048
     Dates: end: 20080101
  2. PHENOBARBITAL TAB [Suspect]
     Dosage: UNK
     Route: 048
     Dates: end: 20080101
  3. ATENOLOL [Suspect]
     Dosage: UNK
     Route: 048
     Dates: end: 20080101
  4. FLUOXETINE [Suspect]
     Dosage: UNK
     Route: 048
     Dates: end: 20080101
  5. DOXEPIN HCL [Suspect]
     Dosage: UNK
     Route: 048
     Dates: end: 20080101
  6. CITALOPRAM HYDROBROMIDE [Suspect]
     Dosage: UNK
     Route: 048
     Dates: end: 20080101
  7. BUSPIRONE HCL [Suspect]
     Dosage: UNK
     Route: 048
     Dates: end: 20080101
  8. DIGOXIN [Suspect]
     Route: 048

REACTIONS (2)
  - COMPLETED SUICIDE [None]
  - TOXICITY TO VARIOUS AGENTS [None]
